FAERS Safety Report 12747349 (Version 1)
Quarter: 2016Q3

REPORT INFORMATION
  Report Type: Spontaneous
  Country: US (occurrence: US)
  Receive Date: 20160915
  Receipt Date: 20160915
  Transmission Date: 20161109
  Serious: No
  Sender: FDA-Public Use
  Company Number: US-JAZZ-2016-US-009629

PATIENT
  Age: 46 Year
  Sex: Female
  Weight: 52.15 kg

DRUGS (26)
  1. FENTANYL. [Concomitant]
     Active Substance: FENTANYL
     Dosage: 100 MCG/HR
  2. KETOROLAC [Concomitant]
     Active Substance: KETOROLAC\KETOROLAC TROMETHAMINE
  3. ZANAFLEX [Concomitant]
     Active Substance: TIZANIDINE HYDROCHLORIDE
     Indication: SCIATICA
  4. FENTANYL. [Concomitant]
     Active Substance: FENTANYL
     Indication: FIBROMYALGIA
     Dosage: 50 MCG/ HR
  5. IRON [Concomitant]
     Active Substance: IRON
     Indication: IRON DEFICIENCY
  6. MSIR [Concomitant]
     Active Substance: MORPHINE SULFATE
     Indication: FIBROMYALGIA
  7. PROTONIX [Concomitant]
     Active Substance: PANTOPRAZOLE SODIUM
  8. CALCIUM +D [Concomitant]
     Active Substance: CALCIUM\VITAMIN D
  9. FERROUS SULFATE. [Concomitant]
     Active Substance: FERROUS SULFATE
  10. VITAMIN B12 [Concomitant]
     Active Substance: CYANOCOBALAMIN
     Indication: VITAMIN B12 DEFICIENCY
  11. AMBIEN CR [Concomitant]
     Active Substance: ZOLPIDEM TARTRATE
  12. TIGAN [Concomitant]
     Active Substance: TRIMETHOBENZAMIDE HYDROCHLORIDE
  13. BACLOFEN. [Concomitant]
     Active Substance: BACLOFEN
     Indication: SCIATICA
  14. BENADRYL ALLERGY [Concomitant]
     Active Substance: DIPHENHYDRAMINE HYDROCHLORIDE
  15. CYANOCOBALAMINE [Concomitant]
     Active Substance: CYANOCOBALAMIN
  16. XYREM [Suspect]
     Active Substance: SODIUM OXYBATE
     Indication: INSOMNIA
     Dosage: 2.5 G, BID
     Route: 048
     Dates: start: 201405, end: 201405
  17. RESTORIL [Concomitant]
     Active Substance: TEMAZEPAM
  18. MIRALAX [Concomitant]
     Active Substance: POLYETHYLENE GLYCOL 3350
  19. MORPHINE SULFATE. [Concomitant]
     Active Substance: MORPHINE SULFATE
  20. XYREM [Suspect]
     Active Substance: SODIUM OXYBATE
     Indication: FIBROMYALGIA
     Dosage: 3 G, BID
     Route: 048
     Dates: start: 201405, end: 201407
  21. CLARITIN [Concomitant]
     Active Substance: LORATADINE
  22. VALIUM [Concomitant]
     Active Substance: DIAZEPAM
  23. MULTIVITAMINS [Concomitant]
     Active Substance: VITAMINS
  24. CALCIUM [Concomitant]
     Active Substance: CALCIUM
     Indication: SUPPLEMENTATION THERAPY
  25. XYREM [Suspect]
     Active Substance: SODIUM OXYBATE
     Dosage: 4.5 G, BID
     Route: 048
     Dates: start: 201407
  26. TIZANIDINE HCL [Concomitant]
     Active Substance: TIZANIDINE HYDROCHLORIDE

REACTIONS (5)
  - Somnambulism [Unknown]
  - Fatigue [Unknown]
  - Fall [Recovered/Resolved]
  - Lower limb fracture [Unknown]
  - Myoclonus [Not Recovered/Not Resolved]

NARRATIVE: CASE EVENT DATE: 20160423
